FAERS Safety Report 9892248 (Version 1)
Quarter: 2014Q1

REPORT INFORMATION
  Report Type: Spontaneous
  Country: US (occurrence: US)
  Receive Date: 20140212
  Receipt Date: 20140212
  Transmission Date: 20141002
  Serious: No
  Sender: FDA-Public Use
  Company Number: US-TEVA-462595USA

PATIENT
  Sex: Female
  Weight: 68.1 kg

DRUGS (2)
  1. PLAN B [Suspect]
     Indication: POST COITAL CONTRACEPTION
     Dosage: 1.5 MILLIGRAM DAILY;
     Route: 048
     Dates: start: 200308, end: 200308
  2. PERCOCET [Concomitant]
     Indication: INTERVERTEBRAL DISC PROTRUSION

REACTIONS (1)
  - Dysmenorrhoea [Recovered/Resolved]
